FAERS Safety Report 13910196 (Version 1)
Quarter: 2017Q3

REPORT INFORMATION
  Report Type: Spontaneous
  Country: US (occurrence: US)
  Receive Date: 20170828
  Receipt Date: 20170828
  Transmission Date: 20171127
  Serious: No
  Sender: FDA-Public Use
  Company Number: US-CELGENEUS-USA-20170806431

PATIENT
  Sex: Female

DRUGS (5)
  1. OTEZLA [Suspect]
     Active Substance: APREMILAST
     Indication: PRURITUS
  2. OTEZLA [Suspect]
     Active Substance: APREMILAST
     Indication: DERMATITIS
  3. OTEZLA [Suspect]
     Active Substance: APREMILAST
     Indication: PSORIASIS
     Dosage: 60 MILLIGRAM
     Route: 048
  4. OTEZLA [Suspect]
     Active Substance: APREMILAST
     Indication: PSORIASIS
  5. OTEZLA [Suspect]
     Active Substance: APREMILAST
     Indication: EXPOSURE TO RADIATION

REACTIONS (3)
  - Malaise [Unknown]
  - Headache [Unknown]
  - Diarrhoea [Unknown]
